FAERS Safety Report 10156456 (Version 2)
Quarter: 2014Q2

REPORT INFORMATION
  Report Type: Spontaneous
  Country: US (occurrence: US)
  Receive Date: 20140507
  Receipt Date: 20140507
  Transmission Date: 20141212
  Serious: Yes (Other)
  Sender: FDA-Public Use
  Company Number: US-ROCHE-1377651

PATIENT
  Age: 67 Year
  Sex: Female

DRUGS (7)
  1. XELODA [Suspect]
     Indication: PRODUCT USED FOR UNKNOWN INDICATION
     Route: 048
     Dates: start: 20140221, end: 20140420
  2. BUPRENORPHINE [Concomitant]
     Route: 065
     Dates: start: 20140402
  3. SUBUTEX [Concomitant]
     Route: 065
  4. VALACYCLOVIR [Concomitant]
     Route: 065
  5. LEVOTHYROXINE [Concomitant]
     Route: 065
  6. FUROSEMIDE [Concomitant]
     Dosage: AS REQUIRED
     Route: 065
  7. MONTELUKAST [Concomitant]
     Route: 065

REACTIONS (10)
  - Peripheral swelling [Not Recovered/Not Resolved]
  - Therapeutic product ineffective [Unknown]
  - Neuropathy peripheral [Not Recovered/Not Resolved]
  - Pulmonary oedema [Not Recovered/Not Resolved]
  - Metastases to lymph nodes [Not Recovered/Not Resolved]
  - Pleurisy [Not Recovered/Not Resolved]
  - Neoplasm [Not Recovered/Not Resolved]
  - Metastases to lung [Not Recovered/Not Resolved]
  - Pyrexia [Not Recovered/Not Resolved]
  - Pain [Not Recovered/Not Resolved]
